FAERS Safety Report 6310721-1 (Version None)
Quarter: 2009Q3

REPORT INFORMATION
  Report Type: 
  Country: None (occurrence: None)
  Receive Date: 20090811
  Receipt Date: 20090805
  Transmission Date: 20100115
  Serious: Yes (Hospitalization)
  Sender: FDA-Public Use
  Company Number: GXKR2009DE08878

PATIENT
  Age: 72 Year
  Sex: Male
  Weight: 90 kg

DRUGS (14)
  1. BISOPROLOL 1A PHARMA (BISOPROLOL) FILM-COATED [Suspect]
     Indication: HYPERTENSION
     Dosage: 2.5 MG, BID, ORAL
     Route: 048
     Dates: start: 20051201
  2. HYDROCHLOROTHIAZIDE [Suspect]
     Indication: HYPERTENSION
     Dosage: 12.5 MG, QD, ORAL
     Route: 048
     Dates: start: 20000101
  3. AKINETON [Suspect]
     Indication: CEREBROVASCULAR ACCIDENT
     Dosage: 2 MG, QD, ORAL
     Route: 048
     Dates: start: 20040101
  4. ARICEPT [Suspect]
     Indication: DEMENTIA
     Dosage: 5 MG, QD, ORAL
     Route: 048
     Dates: start: 20040101
  5. DIPIPERON (PIPAMPERONE, PIPAMPERONE HYDROCHLORIDE) [Suspect]
     Indication: CEREBROVASCULAR ACCIDENT
     Dosage: 20 MG, QD, ORAL
     Route: 048
     Dates: start: 20040101
  6. CLONAZEPAM [Concomitant]
  7. ATACAND [Concomitant]
  8. CONVULEX ^PROMONTA LUNDBECK^ (VALPROIC ACID) [Concomitant]
  9. DAPOTUM D FOR INJECTION (FLUPHENAZINE DECANOATE) [Concomitant]
  10. INSULIN ACTRAPID ^NOVO NORDISK^ (INSULIN HUMAN) [Concomitant]
  11. INSULIN PROTAPHAN HM (GE) (INSULIN HUMAN) [Concomitant]
  12. PANTOPRAZOLE SODIUM [Concomitant]
  13. PLAVIX [Concomitant]
  14. RAMIPRIL [Concomitant]

REACTIONS (2)
  - BRADYCARDIA [None]
  - HYPONATRAEMIA [None]
